FAERS Safety Report 12586817 (Version 2)
Quarter: 2016Q3

REPORT INFORMATION
  Report Type: Spontaneous
  Country: US (occurrence: US)
  Receive Date: 20160725
  Receipt Date: 20160808
  Transmission Date: 20161109
  Serious: No
  Sender: FDA-Public Use
  Company Number: US-PFIZER INC-2016351007

PATIENT
  Age: 74 Year
  Sex: Female

DRUGS (1)
  1. LYRICA [Suspect]
     Active Substance: PREGABALIN
     Dosage: 50 MG, UNK
     Dates: start: 2016

REACTIONS (3)
  - Incorrect product storage [Unknown]
  - Drug ineffective [Unknown]
  - Feeling abnormal [Unknown]
